FAERS Safety Report 8897649 (Version 1)
Quarter: 2012Q4

REPORT INFORMATION
  Report Type: 
  Country: US (occurrence: US)
  Receive Date: 20121108
  Receipt Date: 20121108
  Transmission Date: 20130627
  Serious: Yes (Hospitalization)
  Sender: FDA-Public Use
  Company Number: US-AMGEN-USASP2012025144

PATIENT
  Age: 71 Year
  Sex: Female
  Weight: 63 kg

DRUGS (13)
  1. ENBREL [Suspect]
     Indication: PRODUCT USED FOR UNKNOWN INDICATION
     Dosage: 50 mg, qwk
  2. CARDIZEM                           /00489701/ [Concomitant]
     Dosage: 180 mg, UNK
  3. LABETALOL [Concomitant]
     Dosage: 100 mg, UNK
  4. LOPRESSOR [Concomitant]
     Dosage: 100 mg, UNK
  5. ZOCOR [Concomitant]
     Dosage: 10 mg, UNK
  6. AMITRIPTYLIN [Concomitant]
     Dosage: 10 mg, UNK
  7. XANAX [Concomitant]
     Dosage: 0.25 mg, UNK
  8. AMBIEN [Concomitant]
     Dosage: 5 mg, UNK
  9. ALLEGRA-D                          /01367401/ [Concomitant]
     Dosage: UNK UNK, q12h
  10. FISH OIL [Concomitant]
     Dosage: UNK
  11. MULTIVITAMIN                       /00097801/ [Concomitant]
     Dosage: UNK
  12. VITAMIN C                          /00008001/ [Concomitant]
     Dosage: 500 mg, UNK
  13. ASPIRIN [Concomitant]
     Dosage: 81 mg, UNK

REACTIONS (2)
  - Diverticulitis [Unknown]
  - Bronchitis [Unknown]
